FAERS Safety Report 24530622 (Version 1)
Quarter: 2024Q4

REPORT INFORMATION
  Report Type: Spontaneous
  Country: US (occurrence: US)
  Receive Date: 20241021
  Receipt Date: 20241021
  Transmission Date: 20250115
  Serious: No
  Sender: INCYTE
  Company Number: US-INCYTE CORPORATION-2024IN010903

PATIENT

DRUGS (2)
  1. PEMAZYRE [Suspect]
     Active Substance: PEMIGATINIB
     Indication: Malignant lymphoid neoplasm
     Dosage: 4.5 MILLIGRAM
     Route: 065
  2. PEMAZYRE [Suspect]
     Active Substance: PEMIGATINIB
     Indication: Lymphoma

REACTIONS (9)
  - Nail deformation [Unknown]
  - Pain [Unknown]
  - Bone pain [Unknown]
  - Ingrowing nail [Unknown]
  - Constipation [Unknown]
  - Alopecia [Unknown]
  - Vomiting [Unknown]
  - Nausea [Unknown]
  - Off label use [Unknown]
